FAERS Safety Report 8118586-2 (Version None)
Quarter: 2012Q1

REPORT INFORMATION
  Report Type: 
  Country: None (occurrence: None)
  Receive Date: 20120202
  Receipt Date: 20120120
  Transmission Date: 20120608
  Serious: Yes (Death, Life-Threatening, Hospitalization, Other)
  Sender: FDA-Public Use
  Company Number: 2012MA000991

PATIENT
  Sex: Female

DRUGS (10)
  1. PERIACTIN [Concomitant]
  2. CARDIZEM CD [Concomitant]
  3. IRON [Concomitant]
  4. LASIX [Concomitant]
  5. PLAVIX [Concomitant]
  6. DIGOXIN [Suspect]
     Dosage: 125 MCG; QD; PO
     Route: 048
     Dates: start: 20060301, end: 20080601
  7. DILANTIN [Concomitant]
  8. LIPITOR [Concomitant]
  9. QUINAPRIL [Concomitant]
  10. POTASSIUM CHLORIDE [Concomitant]

REACTIONS (33)
  - PAIN [None]
  - SUBDURAL HAEMATOMA [None]
  - SINUSITIS [None]
  - DIZZINESS [None]
  - NIGHTMARE [None]
  - CARDIO-RESPIRATORY ARREST [None]
  - ALTERED STATE OF CONSCIOUSNESS [None]
  - ACUTE RESPIRATORY DISTRESS SYNDROME [None]
  - WEIGHT DECREASED [None]
  - RASH [None]
  - MUSCULAR WEAKNESS [None]
  - OEDEMA PERIPHERAL [None]
  - ACUTE RESPIRATORY FAILURE [None]
  - ARTHRITIS [None]
  - BRADYCARDIA [None]
  - CARDIAC ARREST [None]
  - CEREBROVASCULAR ACCIDENT [None]
  - CONVULSION [None]
  - DECREASED APPETITE [None]
  - GASTRITIS [None]
  - THROMBOCYTOPENIA [None]
  - EMBOLISM [None]
  - ASCITES [None]
  - PNEUMOTHORAX [None]
  - TREMOR [None]
  - RALES [None]
  - ANAEMIA [None]
  - ANXIETY [None]
  - LOSS OF CONSCIOUSNESS [None]
  - HYPERTENSION [None]
  - HIATUS HERNIA [None]
  - OVARIAN CANCER [None]
  - CARDIOACTIVE DRUG LEVEL INCREASED [None]
